FAERS Safety Report 4814778-6 (Version None)
Quarter: 2005Q4

REPORT INFORMATION
  Report Type: 
  Country: None (occurrence: None)
  Receive Date: 20051028
  Receipt Date: 20041228
  Transmission Date: 20060501
  Serious: No
  Sender: FDA-Public Use
  Company Number: US-GLAXOSMITHKLINE-A0538570A

PATIENT
  Age: 87 Year
  Sex: Female

DRUGS (8)
  1. ADVAIR DISKUS 100/50 [Suspect]
     Indication: DRUG USE FOR UNKNOWN INDICATION
     Route: 055
  2. FERROUS SULFATE TAB [Concomitant]
  3. FUROSEMIDE [Concomitant]
  4. CALCIUM GLUCONATE [Concomitant]
  5. PLAVIX [Concomitant]
  6. PAROXETINE HCL [Concomitant]
  7. DIOVAN [Concomitant]
  8. VYTORIN [Concomitant]

REACTIONS (2)
  - DRUG INEFFECTIVE [None]
  - PHARMACEUTICAL PRODUCT COMPLAINT [None]
